FAERS Safety Report 8942114 (Version 1)
Quarter: 2012Q4

REPORT INFORMATION
  Report Type: 
  Country: FR (occurrence: FR)
  Receive Date: 20121130
  Receipt Date: 20121130
  Transmission Date: 20130627
  Serious: Yes (Hospitalization)
  Sender: FDA-Public Use
  Company Number: FR-VIIV HEALTHCARE LIMITED-B0846567A

PATIENT
  Sex: Male

DRUGS (3)
  1. KIVEXA [Suspect]
     Indication: HIV INFECTION
     Dosage: 1TAB Per day
     Route: 048
     Dates: start: 201206, end: 201209
  2. VIRAMUNE [Concomitant]
     Indication: HIV INFECTION
     Dosage: 200MG Twice per day
     Route: 065
     Dates: start: 1999
  3. TRUVADA [Concomitant]
     Indication: HIV INFECTION
     Dosage: 200MG per day
     Route: 065
     Dates: start: 200905, end: 201206

REACTIONS (2)
  - Diarrhoea [Recovered/Resolved]
  - Colitis microscopic [Recovered/Resolved]
